FAERS Safety Report 6162902-8 (Version None)
Quarter: 2009Q2

REPORT INFORMATION
  Report Type: 
  Country: None (occurrence: None)
  Receive Date: 20090421
  Receipt Date: 20090127
  Transmission Date: 20091009
  Serious: No
  Sender: FDA-Public Use
  Company Number: US-ASTRAZENECA-2009UW02429

PATIENT
  Age: 64 Year
  Sex: Male
  Weight: 145.1 kg

DRUGS (1)
  1. METOPROLOL SUCCINATE [Suspect]
     Route: 048
     Dates: start: 20070101

REACTIONS (1)
  - HYPOAESTHESIA [None]
